FAERS Safety Report 7117907 (Version 2)
Quarter: 2013Q2

REPORT INFORMATION
  Report Type: Spontaneous
  Country: US (occurrence: None)
  Receive Date: 20090821
  Receipt Date: 20130621
  Transmission Date: 20140414
  Serious: Yes (Other)
  Sender: FDA-Public Use
  Company Number: 8047531

PATIENT
  Sex: Male

DRUGS (1)
  1. CIMZIA [Suspect]
     Indication: CROHN^S DISEASE
     Dosage: 200 MG 1X/2 WEEKS SUBCUTANEOUS  TO CONTINUING?
     Route: 058
     Dates: start: 20090209

REACTIONS (4)
  - FISTULA [None]
  - PYREXIA [None]
  - PAIN [None]
  - ABSCESS [None]
